FAERS Safety Report 10281106 (Version 2)
Quarter: 2015Q3

REPORT INFORMATION
  Report Type: Spontaneous
  Country: US (occurrence: US)
  Receive Date: 20140707
  Receipt Date: 20150713
  Transmission Date: 20151125
  Serious: Yes (Hospitalization)
  Sender: FDA-Public Use
  Company Number: US-AMGEN-USASP2014041380

PATIENT
  Age: 68 Year
  Sex: Female

DRUGS (1)
  1. ENBREL [Suspect]
     Active Substance: ETANERCEPT
     Indication: RHEUMATOID ARTHRITIS
     Dosage: 50 MG, QWK
     Route: 065
     Dates: start: 20000501

REACTIONS (4)
  - Pain [Recovered/Resolved]
  - Arthrodesis [Recovered/Resolved]
  - Gingival disorder [Recovered/Resolved]
  - Jaw disorder [Recovered/Resolved]

NARRATIVE: CASE EVENT DATE: 2008
